FAERS Safety Report 20858918 (Version 1)
Quarter: 2022Q2

REPORT INFORMATION
  Report Type: Spontaneous
  Country: US (occurrence: US)
  Receive Date: 20220522
  Receipt Date: 20220522
  Transmission Date: 20220721
  Serious: Yes (Other)
  Sender: FDA-Public Use
  Company Number: US-SA-SAC20220516001380

PATIENT
  Age: 56 Year
  Sex: Female

DRUGS (2)
  1. ZANTAC [Suspect]
     Active Substance: RANITIDINE HYDROCHLORIDE
     Indication: Gastric ulcer
     Dosage: 150 MG, QD
     Route: 065
     Dates: start: 199601, end: 201801
  2. ZANTAC [Suspect]
     Active Substance: RANITIDINE HYDROCHLORIDE
     Indication: Dyspepsia

REACTIONS (2)
  - Breast cancer stage II [Unknown]
  - Chest wall tumour [Unknown]

NARRATIVE: CASE EVENT DATE: 20180101
